FAERS Safety Report 19032417 (Version 1)
Quarter: 2021Q1

REPORT INFORMATION
  Report Type: Other
  Country: US (occurrence: US)
  Receive Date: 20210319
  Receipt Date: 20210319
  Transmission Date: 20210420
  Serious: Yes (Hospitalization, Other)
  Sender: FDA-Public Use
  Company Number: US-ACORDA-ACO_168216_2021

PATIENT
  Age: 51 Year
  Sex: Female

DRUGS (4)
  1. AMPYRA [Suspect]
     Active Substance: DALFAMPRIDINE
     Indication: GAIT DISTURBANCE
     Dosage: UNK
     Route: 065
     Dates: start: 2018
  2. TERIFLUNOMIDE. [Suspect]
     Active Substance: TERIFLUNOMIDE
     Dosage: 14 MILLIGRAM, QD
     Route: 048
     Dates: start: 20151231
  3. TERIFLUNOMIDE. [Suspect]
     Active Substance: TERIFLUNOMIDE
     Indication: MULTIPLE SCLEROSIS
     Dosage: 14 MILLIGRAM, QD
     Route: 048
     Dates: start: 20151231
  4. AMPYRA [Suspect]
     Active Substance: DALFAMPRIDINE
     Indication: BALANCE DISORDER
     Dosage: UNK
     Route: 065

REACTIONS (11)
  - Transient ischaemic attack [Not Recovered/Not Resolved]
  - Intervertebral disc protrusion [Unknown]
  - Muscle spasms [Not Recovered/Not Resolved]
  - Product dose omission issue [Unknown]
  - Abdominal pain [Not Recovered/Not Resolved]
  - Hypertension [Unknown]
  - Depression [Not Recovered/Not Resolved]
  - Cholelithiasis [Unknown]
  - Musculoskeletal stiffness [Not Recovered/Not Resolved]
  - Facial paralysis [Not Recovered/Not Resolved]
  - Constipation [Unknown]

NARRATIVE: CASE EVENT DATE: 201911
